FAERS Safety Report 4993644-X (Version None)
Quarter: 2006Q2

REPORT INFORMATION
  Report Type: 
  Country: None (occurrence: None)
  Receive Date: 20060505
  Receipt Date: 20060119
  Transmission Date: 20061013
  Serious: Yes (Hospitalization)
  Sender: FDA-Public Use
  Company Number: US-MERCK-0601USA02583

PATIENT
  Age: 52 Year
  Sex: Male
  Weight: 100 kg

DRUGS (18)
  1. VIOXX [Suspect]
     Indication: ARTHRITIS
     Route: 048
     Dates: start: 19991130, end: 20040930
  2. VIOXX [Suspect]
     Indication: ARTHRALGIA
     Route: 048
     Dates: start: 19991130, end: 20040930
  3. AGGRENOX [Concomitant]
     Route: 065
  4. [THERAPY UNSPECIFIED] [Concomitant]
     Route: 065
  5. ALTACE [Concomitant]
     Route: 065
  6. AMBIEN [Concomitant]
     Route: 065
  7. CIPROFLOXACIN HCL [Concomitant]
     Route: 065
  8. CRESTOR [Concomitant]
     Route: 065
  9. CYCLOBENZAPRINE HYDROCHLORIDE [Concomitant]
     Route: 065
  10. DOXYCYCLINE [Concomitant]
     Route: 065
  11. HYDROCHLOROTHIAZIDE [Concomitant]
     Route: 065
  12. ACETAMINOPHEN AND HYDROCODONE BITARTRATE [Concomitant]
     Route: 065
  13. LIPITOR [Concomitant]
     Route: 065
  14. METHYLPREDNISOLONE [Concomitant]
     Route: 065
  15. ACETAMINOPHEN AND OXYCODONE HYDROCHLORIDE [Concomitant]
     Route: 065
  16. TRIAZOLAM [Concomitant]
     Route: 065
  17. ULTRAM [Concomitant]
     Route: 065
  18. ZITHROMAX [Concomitant]
     Route: 065

REACTIONS (5)
  - ANXIETY [None]
  - BACTERIAL INFECTION [None]
  - CEREBROVASCULAR ACCIDENT [None]
  - INSOMNIA [None]
  - NEPHROLITHIASIS [None]
